FAERS Safety Report 8895824 (Version 1)
Quarter: 2012Q4

REPORT INFORMATION
  Report Type: 
  Country: US (occurrence: US)
  Receive Date: 20121107
  Receipt Date: 20121107
  Transmission Date: 20130627
  Serious: No
  Sender: FDA-Public Use
  Company Number: US-ASTRAZENECA-2012SE82118

PATIENT
  Age: 71 Year
  Sex: Female

DRUGS (1)
  1. NEXIUM [Suspect]
     Route: 048

REACTIONS (8)
  - Gastrooesophageal reflux disease [Unknown]
  - Sinusitis [Unknown]
  - Pharyngeal erythema [Unknown]
  - Hearing impaired [Unknown]
  - Adverse event [Unknown]
  - Sleep disorder due to a general medical condition [Unknown]
  - Retching [Unknown]
  - Drug dose omission [Unknown]
